FAERS Safety Report 10336416 (Version 1)
Quarter: 2014Q3

REPORT INFORMATION
  Report Type: Spontaneous
  Country: US (occurrence: US)
  Receive Date: 20140723
  Receipt Date: 20140723
  Transmission Date: 20150326
  Serious: No
  Sender: FDA-Public Use
  Company Number: US-BRISTOL-MYERS SQUIBB COMPANY-20603155

PATIENT
  Age: 72 Year
  Sex: Female
  Weight: 60.77 kg

DRUGS (4)
  1. SOTALOL. [Concomitant]
     Active Substance: SOTALOL
  2. CALCIUM [Concomitant]
     Active Substance: CALCIUM
  3. COUMADIN [Suspect]
     Active Substance: WARFARIN SODIUM
     Dates: end: 201310
  4. VITAMIN D [Concomitant]
     Active Substance: CHOLECALCIFEROL

REACTIONS (2)
  - Pain in extremity [Recovered/Resolved]
  - Alopecia [Recovered/Resolved]
